FAERS Safety Report 7507097-0 (Version None)
Quarter: 2011Q2

REPORT INFORMATION
  Report Type: 
  Country: None (occurrence: None)
  Receive Date: 20110526
  Receipt Date: 20110518
  Transmission Date: 20111010
  Serious: Yes (Other)
  Sender: FDA-Public Use
  Company Number: US-ASTRAZENECA-2011SE29491

PATIENT
  Age: 40 Year
  Sex: Female
  Weight: 75.5 kg

DRUGS (2)
  1. ATENOLOL [Suspect]
     Indication: HYPERTENSION
  2. VALSARTAN [Suspect]
     Indication: HYPERTENSION

REACTIONS (3)
  - TOXICITY TO VARIOUS AGENTS [None]
  - OLIGOHYDRAMNIOS [None]
  - DRUG EXPOSURE DURING PREGNANCY [None]
